FAERS Safety Report 5582145-6 (Version None)
Quarter: 2008Q1

REPORT INFORMATION
  Report Type: 
  Country: None (occurrence: None)
  Receive Date: 20080104
  Receipt Date: 20071221
  Transmission Date: 20080703
  Serious: Yes (Other)
  Sender: FDA-Public Use
  Company Number: GB-RANBAXY-2007RR-12272

PATIENT

DRUGS (3)
  1. TERBINAFINE HCL [Suspect]
     Indication: ONYCHOMYCOSIS
     Dosage: 250 MG, UNK
     Route: 048
     Dates: start: 20070615, end: 20071012
  2. CO-CODAMOL [Concomitant]
     Indication: MUSCLE SPASMS
     Dosage: UNK
     Route: 048
     Dates: start: 20070813, end: 20070820
  3. DICLOFENAC SODIUM [Concomitant]
     Indication: MUSCLE SPASMS
     Dosage: 50 MG, UNK
     Route: 048
     Dates: start: 20070813, end: 20070820

REACTIONS (1)
  - DYSTONIA [None]
